FAERS Safety Report 26027068 (Version 4)
Quarter: 2025Q4

REPORT INFORMATION
  Report Type: Report from Study
  Country: US (occurrence: US)
  Receive Date: 20251111
  Receipt Date: 20251211
  Transmission Date: 20260118
  Serious: No
  Sender: MALLINCKRODT
  Company Number: US-MALLINCKRODT-MNK202506838

PATIENT
  Age: 24 Year
  Sex: Female

DRUGS (5)
  1. CORTICOTROPIN [Suspect]
     Active Substance: CORTICOTROPIN
     Indication: Cyclitis
     Dosage: 80 UNITS
     Route: 058
     Dates: start: 20251029
  2. PREDNISONE [Suspect]
     Active Substance: PREDNISONE
     Indication: Product used for unknown indication
     Dates: start: 202511, end: 202511
  3. PREDNISONE [Suspect]
     Active Substance: PREDNISONE
     Dates: start: 202511, end: 2025
  4. PREDNISONE [Suspect]
     Active Substance: PREDNISONE
     Dosage: UNKNOWN
  5. PREDNISONE [Suspect]
     Active Substance: PREDNISONE
     Dates: start: 2025

REACTIONS (6)
  - Abdominal discomfort [Unknown]
  - Pain [Not Recovered/Not Resolved]
  - Increased tendency to bruise [Unknown]
  - Diarrhoea [Unknown]
  - Vomiting [Unknown]
  - Injection site swelling [Not Recovered/Not Resolved]

NARRATIVE: CASE EVENT DATE: 20250101
